FAERS Safety Report 23292406 (Version 2)
Quarter: 2024Q1

REPORT INFORMATION
  Report Type: Report from Study
  Country: DE (occurrence: DE)
  Receive Date: 20231213
  Receipt Date: 20240118
  Transmission Date: 20240410
  Serious: Yes (Life-Threatening, Hospitalization, Other)
  Sender: FDA-Public Use
  Company Number: DE-IPSEN Group, Research and Development-2023-27135

PATIENT

DRUGS (17)
  1. CABOZANTINIB [Suspect]
     Active Substance: CABOZANTINIB
     Indication: Renal cell carcinoma
     Dosage: 40 MG, QD
     Route: 048
     Dates: start: 20231018
  2. NIVOLUMAB [Suspect]
     Active Substance: NIVOLUMAB
     Indication: Renal cell carcinoma
     Dosage: 240 MG
     Route: 042
     Dates: start: 20231102
  3. NIVOLUMAB [Suspect]
     Active Substance: NIVOLUMAB
     Dosage: 240 MG
     Route: 042
     Dates: start: 20231116
  4. NIVOLUMAB [Suspect]
     Active Substance: NIVOLUMAB
     Dosage: 240 MG
     Route: 042
     Dates: start: 20231130
  5. TORSEMIDE [Concomitant]
     Active Substance: TORSEMIDE
     Indication: Hypertension
     Dosage: 5 MG, QD
     Route: 048
  6. VERAPAMIL [Concomitant]
     Active Substance: VERAPAMIL HYDROCHLORIDE
     Indication: Hypertension
     Dosage: 80 MG, BID
     Route: 048
  7. VALSARTAN [Concomitant]
     Active Substance: VALSARTAN
     Indication: Hypertension
     Dosage: 160 MG, QD
     Route: 048
  8. ASPIRIN [Concomitant]
     Active Substance: ASPIRIN
     Indication: Hypertension
     Dosage: 100 MG, QD
     Route: 048
  9. PANTOZOL [Concomitant]
     Active Substance: PANTOPRAZOLE SODIUM
     Indication: Prophylaxis
     Dosage: 20 MG, QD
     Route: 048
  10. ROSUVASTATIN [Concomitant]
     Active Substance: ROSUVASTATIN
     Indication: Hyperlipidaemia
     Dosage: 20 MG, QD
     Route: 048
  11. JARDIANCE [Concomitant]
     Active Substance: EMPAGLIFLOZIN
     Indication: Diabetes mellitus
     Dosage: 10 MG, QD
     Route: 048
  12. OZEMPIC [Concomitant]
     Active Substance: SEMAGLUTIDE
     Indication: Diabetes mellitus
     Dosage: 0.5 MG, Q WEEKLY (1/7D - ONE TIME PER WEEK)
     Route: 058
  13. ENOXAPARIN SODIUM [Concomitant]
     Active Substance: ENOXAPARIN SODIUM
     Indication: Prophylaxis
     Dosage: 0.4 ML, QD
     Route: 058
     Dates: start: 20231205, end: 20231207
  14. ENOXAPARIN SODIUM [Concomitant]
     Active Substance: ENOXAPARIN SODIUM
     Dosage: 1 ML, QD
     Route: 058
     Dates: start: 20231208
  15. TAMSULOSIN [Concomitant]
     Active Substance: TAMSULOSIN
     Indication: Prophylaxis
     Dosage: 0.4 MG, QD
     Route: 048
     Dates: start: 20231205
  16. INSULIN LISPRO [Concomitant]
     Active Substance: INSULIN LISPRO
     Indication: Diabetes mellitus
     Dosage: 3 ML, Q8HR
     Route: 058
     Dates: start: 20231212
  17. INSULIN GLARGINE [Concomitant]
     Active Substance: INSULIN GLARGINE
     Indication: Diabetes mellitus
     Dosage: 300 ML, QD
     Route: 058
     Dates: start: 20231212

REACTIONS (4)
  - Dyspnoea [Not Recovered/Not Resolved]
  - Cerebrovascular accident [Not Recovered/Not Resolved]
  - Autoimmune hepatitis [Not Recovered/Not Resolved]
  - Alanine aminotransferase increased [Not Recovered/Not Resolved]

NARRATIVE: CASE EVENT DATE: 20231125
